FAERS Safety Report 11923380 (Version 2)
Quarter: 2016Q1

REPORT INFORMATION
  Report Type: Spontaneous
  Country: GB (occurrence: GB)
  Receive Date: 20160118
  Receipt Date: 20160125
  Transmission Date: 20160526
  Serious: Yes (Other)
  Sender: FDA-Public Use
  Company Number: GB-009507513-1601GBR005274

PATIENT

DRUGS (9)
  1. DEXAMETHASONE. [Suspect]
     Active Substance: DEXAMETHASONE
     Dosage: UNKNOWN
     Route: 065
     Dates: start: 200808, end: 200812
  2. DEXAMETHASONE. [Suspect]
     Active Substance: DEXAMETHASONE
     Dosage: UNKNOWN
     Route: 065
     Dates: start: 201202
  3. VELCADE [Suspect]
     Active Substance: BORTEZOMIB
     Dosage: UNKNOWN
     Route: 065
     Dates: start: 200711, end: 200802
  4. REVLIMID [Suspect]
     Active Substance: LENALIDOMIDE
     Indication: PLASMA CELL MYELOMA
     Dosage: UNKNOWN
     Route: 065
     Dates: start: 200906
  5. VELCADE [Suspect]
     Active Substance: BORTEZOMIB
     Indication: PLASMA CELL MYELOMA
     Dosage: UNKNOWN
     Route: 065
     Dates: start: 201202
  6. DEXAMETHASONE. [Suspect]
     Active Substance: DEXAMETHASONE
     Dosage: UNKNOWN
     Route: 065
     Dates: start: 200711, end: 200802
  7. CYCLOPHOSPHAMIDE. [Suspect]
     Active Substance: CYCLOPHOSPHAMIDE
     Indication: PLASMA CELL MYELOMA
     Dosage: UNKNOWN
     Route: 065
     Dates: start: 201202
  8. VELCADE [Suspect]
     Active Substance: BORTEZOMIB
     Dosage: UNKNOWN
     Route: 065
     Dates: start: 200808, end: 200812
  9. DEXAMETHASONE. [Suspect]
     Active Substance: DEXAMETHASONE
     Indication: PLASMA CELL MYELOMA
     Dosage: UKNOWN
     Route: 065
     Dates: start: 200906

REACTIONS (2)
  - Plasma cell myeloma [Unknown]
  - Off label use [Unknown]
